FAERS Safety Report 7459752-9 (Version None)
Quarter: 2011Q2

REPORT INFORMATION
  Report Type: 
  Country: None (occurrence: None)
  Receive Date: 20110505
  Receipt Date: 20110426
  Transmission Date: 20111010
  Serious: Yes (Other)
  Sender: FDA-Public Use
  Company Number: US-AMGEN-USASP2011021853

PATIENT
  Age: 66 Year
  Sex: Male

DRUGS (1)
  1. ENBREL [Suspect]
     Indication: RHEUMATOID ARTHRITIS
     Dosage: 25 MG, 2 TIMES/WK
     Dates: start: 19981118

REACTIONS (5)
  - EMPHYSEMA [None]
  - HERPES ZOSTER [None]
  - LYMPHADENOPATHY [None]
  - SYNOVIAL CYST [None]
  - RHEUMATOID ARTHRITIS [None]
